FAERS Safety Report 12343182 (Version 1)
Quarter: 2016Q2

REPORT INFORMATION
  Report Type: Spontaneous
  Country: FR (occurrence: FR)
  Receive Date: 20160506
  Receipt Date: 20160506
  Transmission Date: 20160815
  Serious: Yes (Life-Threatening, Hospitalization)
  Sender: FDA-Public Use
  Company Number: FR-ASTRAZENECA-2016SE47778

PATIENT
  Age: 32512 Day
  Sex: Female

DRUGS (13)
  1. CRESTOR [Concomitant]
     Active Substance: ROSUVASTATIN CALCIUM
     Route: 048
  2. XATRAL [Concomitant]
     Active Substance: ALFUZOSIN
     Dosage: 10 MG SR AT NIGHT
  3. CEFTRIAXONE. [Suspect]
     Active Substance: CEFTRIAXONE
     Indication: PNEUMONIA ASPIRATION
     Dates: start: 20150227, end: 20150314
  4. FUROSEMIDE. [Concomitant]
     Active Substance: FUROSEMIDE
  5. DOLIPRANE [Concomitant]
     Active Substance: ACETAMINOPHEN
  6. FORLAX [Concomitant]
     Active Substance: POLYETHYLENE GLYCOL 4000
     Dosage: 1 AT MORNING
  7. SPASFON [Concomitant]
     Active Substance: PHLOROGLUCINOL
  8. CELECTOL [Concomitant]
     Active Substance: CELIPROLOL HYDROCHLORIDE
  9. PHOSPHALUGEL [Concomitant]
     Active Substance: ALUMINUM PHOSPHATE
  10. MIANSERIN [Concomitant]
     Active Substance: MIANSERIN
  11. TEMESTA [Concomitant]
     Active Substance: LORAZEPAM
  12. INEXIUM [Suspect]
     Active Substance: ESOMEPRAZOLE
     Route: 048
  13. ASPIRIN. [Concomitant]
     Active Substance: ASPIRIN
     Route: 048

REACTIONS (3)
  - Diarrhoea [Recovered/Resolved]
  - Pneumonia aspiration [Unknown]
  - Clostridium difficile infection [Recovered/Resolved]

NARRATIVE: CASE EVENT DATE: 20150327
